FAERS Safety Report 16465428 (Version 1)
Quarter: 2019Q2

REPORT INFORMATION
  Report Type: Spontaneous
  Country: JP (occurrence: JP)
  Receive Date: 20190621
  Receipt Date: 20190621
  Transmission Date: 20190711
  Serious: Yes (Other)
  Sender: FDA-Public Use
  Company Number: JP-AMGEN-JPNSP2019097859

PATIENT
  Age: 80 Year
  Sex: Female

DRUGS (1)
  1. EVENITY [Suspect]
     Active Substance: ROMOSOZUMAB-AQQG
     Indication: OSTEOPOROTIC FRACTURE
     Dosage: 210 MILLIGRAM
     Route: 058
     Dates: start: 20190614

REACTIONS (3)
  - Pyrexia [Unknown]
  - Seizure [Unknown]
  - Suffocation feeling [Unknown]

NARRATIVE: CASE EVENT DATE: 20190614
